FAERS Safety Report 9550924 (Version 2)
Quarter: 2014Q4

REPORT INFORMATION
  Report Type: Report from Study
  Country: US (occurrence: US)
  Receive Date: 20130924
  Receipt Date: 20141105
  Transmission Date: 20150529
  Serious: Yes (Other)
  Sender: FDA-Public Use
  Company Number: US-SANOFI-AVENTIS-2013SA041696

PATIENT
  Age: 45 Year
  Sex: Female

DRUGS (3)
  1. AUBAGIO [Suspect]
     Active Substance: TERIFLUNOMIDE
     Indication: MULTIPLE SCLEROSIS
     Dosage: PRODUCT START DATE - 12/1
     Route: 048
     Dates: start: 20121201
  2. AUBAGIO [Suspect]
     Active Substance: TERIFLUNOMIDE
     Indication: MULTIPLE SCLEROSIS
     Dosage: PRODUCT START DATE - 12/1
     Route: 048
  3. PEPTO-BISMOL [Concomitant]
     Active Substance: BISMUTH SUBSALICYLATE\CALCIUM CARBONATE

REACTIONS (8)
  - Diarrhoea [Unknown]
  - Back pain [Unknown]
  - Fatigue [Unknown]
  - Feeling drunk [Unknown]
  - Alopecia [Unknown]
  - Hysterectomy [Unknown]
  - Multiple sclerosis [Unknown]
  - Balance disorder [Unknown]
